FAERS Safety Report 18319598 (Version 2)
Quarter: 2020Q4

REPORT INFORMATION
  Report Type: Spontaneous
  Country: US (occurrence: US)
  Receive Date: 20200928
  Receipt Date: 20201109
  Transmission Date: 20210113
  Serious: No
  Sender: FDA-Public Use
  Company Number: US-TOLMAR, INC.-20US022833

PATIENT
  Age: 89 Year
  Sex: Male

DRUGS (1)
  1. ELIGARD [Suspect]
     Active Substance: LEUPROLIDE ACETATE
     Indication: PROSTATE CANCER
     Dosage: 22.5 MG, Q 3 MONTH
     Route: 058
     Dates: start: 20200915

REACTIONS (4)
  - Syringe issue [Unknown]
  - Intercepted product preparation error [Unknown]
  - Device leakage [Unknown]
  - Wrong technique in product usage process [Unknown]

NARRATIVE: CASE EVENT DATE: 20200915
